FAERS Safety Report 4782938-9 (Version None)
Quarter: 2005Q3

REPORT INFORMATION
  Report Type: 
  Country: None (occurrence: None)
  Receive Date: 20050928
  Receipt Date: 20050928
  Transmission Date: 20060218
  Serious: Yes (Life-Threatening, Hospitalization)
  Sender: FDA-Public Use
  Company Number: None

PATIENT
  Age: 61 Year
  Sex: Female
  Weight: 64.1 kg

DRUGS (2)
  1. PREMARIN [Suspect]
     Indication: HOT FLUSH
  2. VERAPAMIL [Concomitant]

REACTIONS (5)
  - CHEST PAIN [None]
  - DEEP VEIN THROMBOSIS [None]
  - LUNG INFILTRATION [None]
  - OEDEMA PERIPHERAL [None]
  - PULMONARY EMBOLISM [None]
